FAERS Safety Report 16081290 (Version 1)
Quarter: 2019Q1

REPORT INFORMATION
  Report Type: Spontaneous
  Country: GB (occurrence: GB)
  Receive Date: 20190316
  Receipt Date: 20190316
  Transmission Date: 20190418
  Serious: Yes (Hospitalization)
  Sender: FDA-Public Use
  Company Number: GB-ACCORD-113571

PATIENT
  Age: 81 Year
  Sex: Male

DRUGS (17)
  1. QVAR [Concomitant]
     Active Substance: BECLOMETHASONE DIPROPIONATE
  2. IBUGEL [Concomitant]
     Active Substance: IBUPROFEN
  3. MIRTAZAPINE. [Suspect]
     Active Substance: MIRTAZAPINE
     Indication: PRODUCT USED FOR UNKNOWN INDICATION
     Dosage: STOPPED BY GP AND SWITCHED TO SERTRALINE.
     Route: 048
     Dates: end: 20180924
  4. METHOTREXATE. [Concomitant]
     Active Substance: METHOTREXATE
  5. ALENDRONATE SODIUM/ALENDRONIC ACID [Concomitant]
  6. BRIMONIDINE [Concomitant]
     Active Substance: BRIMONIDINE TARTRATE
  7. FOLIC ACID. [Concomitant]
     Active Substance: FOLIC ACID
  8. ALGINATES [Concomitant]
     Route: 048
  9. DORZOLAMIDE [Concomitant]
     Active Substance: DORZOLAMIDE
     Dosage: 20MG/ML
  10. PARACETAMOL [Concomitant]
     Active Substance: ACETAMINOPHEN
  11. SERTRALINE [Suspect]
     Active Substance: SERTRALINE HYDROCHLORIDE
     Indication: PRODUCT USED FOR UNKNOWN INDICATION
     Dosage: STOPPED AS TO RESTART ON MIRTAZAPINE
     Route: 048
     Dates: start: 20180925, end: 20181003
  12. BIMATOPROST. [Concomitant]
     Active Substance: BIMATOPROST
  13. VENTOLIN [Concomitant]
     Active Substance: ALBUTEROL SULFATE
  14. PREDNISOLONE. [Concomitant]
     Active Substance: PREDNISOLONE
  15. ATORVASTATIN [Concomitant]
     Active Substance: ATORVASTATIN
  16. ADCAL-D3 [Concomitant]
     Active Substance: CALCIUM CARBONATE\CHOLECALCIFEROL
  17. TIMOLOL. [Concomitant]
     Active Substance: TIMOLOL
     Dosage: 5MG/ML

REACTIONS (4)
  - Dizziness [Unknown]
  - Hyperhidrosis [Unknown]
  - Drug withdrawal syndrome [Unknown]
  - Malaise [Unknown]

NARRATIVE: CASE EVENT DATE: 20181003
